FAERS Safety Report 19803737 (Version 1)
Quarter: 2021Q3

REPORT INFORMATION
  Report Type: Spontaneous
  Country: US (occurrence: US)
  Receive Date: 20210908
  Receipt Date: 20210908
  Transmission Date: 20211014
  Serious: Yes (Other)
  Sender: FDA-Public Use
  Company Number: None

PATIENT
  Age: 65 Year
  Sex: Female
  Weight: 51.75 kg

DRUGS (6)
  1. EQUATE COMPLETE MULTIVITAMIN WOMEN 50+ [Concomitant]
  2. PURELY INSPIRED ORGANIC PROTEIN PLANT BASED NURTITIONAL SHAKE [Concomitant]
  3. PROPIONATE NASAL SPRAY USP [Concomitant]
  4. LORATIDINE [Concomitant]
     Active Substance: LORATADINE
  5. SYMBICORT [Concomitant]
     Active Substance: BUDESONIDE\FORMOTEROL FUMARATE DIHYDRATE
  6. MONTELUKAST [Suspect]
     Active Substance: MONTELUKAST SODIUM
     Indication: HYPERSENSITIVITY
     Dosage: ?          QUANTITY:1 TABLET(S);?
     Route: 048
     Dates: start: 20200301, end: 20210311

REACTIONS (6)
  - Anxiety [None]
  - Amnesia [None]
  - Confusional state [None]
  - Aphasia [None]
  - Impaired driving ability [None]
  - Disturbance in attention [None]

NARRATIVE: CASE EVENT DATE: 20210301
